FAERS Safety Report 5946687-3 (Version None)
Quarter: 2008Q4

REPORT INFORMATION
  Report Type: 
  Country: None (occurrence: None)
  Receive Date: 20081110
  Receipt Date: 20080818
  Transmission Date: 20090506
  Serious: No
  Sender: FDA-Public Use
  Company Number: A0744343A

PATIENT
  Age: 73 Year
  Sex: Female

DRUGS (1)
  1. ALTABAX [Suspect]
     Indication: WOUND SECRETION
     Route: 061
     Dates: start: 20080814

REACTIONS (5)
  - APPLICATION SITE IRRITATION [None]
  - APPLICATION SITE PRURITUS [None]
  - ERYTHEMA [None]
  - SKIN DISCOLOURATION [None]
  - SWELLING FACE [None]
